FAERS Safety Report 16873400 (Version 2)
Quarter: 2021Q4

REPORT INFORMATION
  Report Type: Spontaneous
  Country: US (occurrence: US)
  Receive Date: 20191001
  Receipt Date: 20211122
  Transmission Date: 20220303
  Serious: Yes (Other)
  Sender: FDA-Public Use
  Company Number: US-PFIZER INC-2019419959

PATIENT
  Age: 55 Year
  Sex: Male

DRUGS (1)
  1. XELJANZ [Suspect]
     Active Substance: TOFACITINIB CITRATE
     Dosage: 5 MG, UNK
     Dates: start: 20210526

REACTIONS (5)
  - Rheumatoid arthritis [Unknown]
  - Swelling [Unknown]
  - Muscle spasms [Unknown]
  - Hypoacusis [Unknown]
  - Back disorder [Unknown]
